FAERS Safety Report 18649078 (Version 2)
Quarter: 2021Q1

REPORT INFORMATION
  Report Type: Spontaneous
  Country: US (occurrence: US)
  Receive Date: 20201222
  Receipt Date: 20210318
  Transmission Date: 20210419
  Serious: Yes (Other)
  Sender: FDA-Public Use
  Company Number: US-ASTRAZENECA-2020SF68684

PATIENT
  Sex: Female
  Weight: 52.2 kg

DRUGS (3)
  1. IMFINZI [Suspect]
     Active Substance: DURVALUMAB
     Indication: LUNG NEOPLASM MALIGNANT
     Route: 042
     Dates: start: 202006, end: 20201118
  2. TRIAMCIN CREAM [Concomitant]
     Dosage: UNKNOWN
     Route: 065
  3. HYDROXYZINE [Concomitant]
     Active Substance: HYDROXYZINE HYDROCHLORIDE
     Indication: PRURITUS
     Dosage: UNKNOWN
     Route: 065

REACTIONS (14)
  - Dry skin [Unknown]
  - Muscular weakness [Unknown]
  - Pain [Unknown]
  - Asthenia [Unknown]
  - Immune system disorder [Unknown]
  - Pruritus [Recovered/Resolved]
  - Skin disorder [Unknown]
  - Illness [Unknown]
  - Eyelid infection [Unknown]
  - Skin ulcer [Unknown]
  - Rash [Not Recovered/Not Resolved]
  - Feeling abnormal [Unknown]
  - Adrenal insufficiency [Unknown]
  - Gait disturbance [Unknown]
